FAERS Safety Report 23688711 (Version 4)
Quarter: 2024Q2

REPORT INFORMATION
  Report Type: Spontaneous
  Country: US (occurrence: US)
  Receive Date: 20240329
  Receipt Date: 20240516
  Transmission Date: 20240716
  Serious: No
  Sender: FDA-Public Use
  Company Number: US-BIOGEN-2024BI01257146

PATIENT
  Sex: Male

DRUGS (2)
  1. TYSABRI [Suspect]
     Active Substance: NATALIZUMAB
     Indication: Multiple sclerosis
     Route: 050
     Dates: start: 20230928
  2. TYSABRI [Suspect]
     Active Substance: NATALIZUMAB
     Route: 050
     Dates: start: 20211028, end: 20221216

REACTIONS (6)
  - Incorrect route of product administration [Unknown]
  - Infusion site bruising [Recovered/Resolved]
  - Infusion site swelling [Recovered/Resolved]
  - Limb injury [Unknown]
  - Pain in extremity [Unknown]
  - Pyrexia [Recovered/Resolved]
